FAERS Safety Report 7065182-4 (Version None)
Quarter: 2010Q4

REPORT INFORMATION
  Report Type: 
  Country: None (occurrence: None)
  Receive Date: 20101022
  Receipt Date: 20101022
  Transmission Date: 20110411
  Serious: Yes (Other)
  Sender: FDA-Public Use
  Company Number: None

PATIENT
  Age: 81 Year
  Sex: Male
  Weight: 108.8633 kg

DRUGS (2)
  1. CHANTIX [Suspect]
     Indication: CARDIOVASCULAR DISORDER
     Dosage: ONCE OD ORAL
     Route: 048
     Dates: start: 20070101, end: 20080101
  2. CHANTIX [Suspect]
     Indication: TOBACCO USER
     Dosage: ONCE OD ORAL
     Route: 048
     Dates: start: 20070101, end: 20080101

REACTIONS (5)
  - DECREASED INTEREST [None]
  - DEPRESSION [None]
  - DRUG INEFFECTIVE [None]
  - IMPAIRED WORK ABILITY [None]
  - MENTAL DISORDER [None]
